FAERS Safety Report 9786835 (Version 1)
Quarter: 2013Q4

REPORT INFORMATION
  Report Type: Spontaneous
  Country: DE (occurrence: DE)
  Receive Date: 20131227
  Receipt Date: 20131227
  Transmission Date: 20140711
  Serious: Yes (Other)
  Sender: FDA-Public Use
  Company Number: DE-UCBSA-106803

PATIENT
  Sex: Female

DRUGS (5)
  1. VIMPAT [Suspect]
     Dosage: 50 MG TABLETS; PACKAGE WITH 56 TABLETS
  2. RAMIPRIL [Concomitant]
     Dosage: UNKNOWN DOSE
  3. VALPROATE [Concomitant]
     Dosage: UNKNOWN DOSE
  4. FOLSAURE [Concomitant]
     Dosage: UNKNOWN DOSE
  5. VITAMIN B12 [Concomitant]
     Dosage: UNKNOWN DOSE

REACTIONS (1)
  - White blood cell count decreased [Unknown]
